FAERS Safety Report 5454831-X (Version None)
Quarter: 2007Q3

REPORT INFORMATION
  Report Type: 
  Country: None (occurrence: None)
  Receive Date: 20070917
  Receipt Date: 20061006
  Transmission Date: 20080115
  Serious: Yes (Hospitalization)
  Sender: FDA-Public Use
  Company Number: US-ASTRAZENECA-2006UW17812

PATIENT
  Age: 79 Year
  Sex: Female
  Weight: 56.4 kg

DRUGS (13)
  1. SEROQUEL [Suspect]
     Indication: ANXIETY
     Route: 048
     Dates: start: 20060831, end: 20060906
  2. SEROQUEL [Suspect]
     Indication: ILL-DEFINED DISORDER
     Route: 048
     Dates: start: 20060831, end: 20060906
  3. ZOCOR [Concomitant]
  4. PROTONIX [Concomitant]
  5. METOCLOPRAMIDE [Concomitant]
  6. AMBIEN [Concomitant]
  7. ARICEPT [Concomitant]
  8. BUSPAR [Concomitant]
  9. LISINOPRIL [Concomitant]
  10. LEXAPRO [Concomitant]
  11. ALBUTEROL [Concomitant]
  12. LEVOTHYROXINE SODIUM [Concomitant]
  13. MECLIZINE [Concomitant]

REACTIONS (1)
  - NEUROLEPTIC MALIGNANT SYNDROME [None]
